FAERS Safety Report 6235413-9 (Version None)
Quarter: 2009Q2

REPORT INFORMATION
  Report Type: 
  Country: None (occurrence: None)
  Receive Date: 20090616
  Receipt Date: 20090604
  Transmission Date: 20091009
  Serious: Yes (Hospitalization)
  Sender: FDA-Public Use
  Company Number: DSA_33795_2009

PATIENT
  Age: 20 Year
  Sex: Male

DRUGS (1)
  1. DICLOFENAC (DICLOFENAC) [Suspect]
     Indication: DRUG USE FOR UNKNOWN INDICATION
     Dosage: 1 INJECTION INTRAMUSCULAR
     Route: 030

REACTIONS (5)
  - BLOOD CREATINE PHOSPHOKINASE INCREASED [None]
  - EMBOLIA CUTIS MEDICAMENTOSA [None]
  - HAEMORRHAGE [None]
  - SKIN HYPOPIGMENTATION [None]
  - TREATMENT NONCOMPLIANCE [None]
